FAERS Safety Report 16550861 (Version 4)
Quarter: 2020Q1

REPORT INFORMATION
  Report Type: Report from Study
  Country: US (occurrence: US)
  Receive Date: 20190710
  Receipt Date: 20200319
  Transmission Date: 20200409
  Serious: Yes (Other)
  Sender: FDA-Public Use
  Company Number: PHHY2019US154493

PATIENT
  Age: 7 Year
  Sex: Male

DRUGS (4)
  1. KYMRIAH [Suspect]
     Active Substance: TISAGENLECLEUCEL
     Indication: B-CELL TYPE ACUTE LEUKAEMIA
     Dosage: UNK, ONCE/SINGLE
     Route: 041
     Dates: start: 2018
  2. CYCLOPHOSPHAMIDE. [Concomitant]
     Active Substance: CYCLOPHOSPHAMIDE
     Indication: CHEMOTHERAPY
     Route: 065
  3. KYMRIAH [Suspect]
     Active Substance: TISAGENLECLEUCEL
     Dosage: UNK, ONCE/SINGLE
     Route: 041
  4. FLUDARABINE [Concomitant]
     Active Substance: FLUDARABINE PHOSPHATE
     Indication: CHEMOTHERAPY
     Route: 065

REACTIONS (13)
  - Cytokine release syndrome [Recovered/Resolved]
  - Haemoglobin decreased [Unknown]
  - B-cell type acute leukaemia [Unknown]
  - Motor dysfunction [Unknown]
  - Haematocrit decreased [Unknown]
  - Paraparesis [Unknown]
  - Aphasia [Unknown]
  - Hemiparesis [Unknown]
  - Pyrexia [Unknown]
  - Neurotoxicity [Recovered/Resolved]
  - Malignant neoplasm progression [Unknown]
  - Hypogammaglobulinaemia [Unknown]
  - Lymphocyte count decreased [Recovering/Resolving]
